FAERS Safety Report 4685306-3 (Version None)
Quarter: 2005Q2

REPORT INFORMATION
  Report Type: 
  Country: None (occurrence: None)
  Receive Date: 20050531
  Receipt Date: 20050411
  Transmission Date: 20051028
  Serious: No
  Sender: FDA-Public Use
  Company Number: WAES 0504USA01491

PATIENT
  Age: 63 Year
  Sex: Female

DRUGS (10)
  1. ZETIA [Suspect]
     Indication: BLOOD CHOLESTEROL INCREASED
     Dosage: 10 MG/DAILY/PO
     Route: 048
     Dates: start: 20050201, end: 20050411
  2. AVALIDE [Concomitant]
  3. NEXIUM [Concomitant]
  4. PREMARIN [Concomitant]
  5. PROMETRIUM [Concomitant]
  6. WELLBUTRIN [Concomitant]
  7. ZELNORM [Concomitant]
  8. ZOCOR [Concomitant]
  9. ZOLOFT [Concomitant]
  10. HYDROCHLOROTHIAZIDE [Concomitant]

REACTIONS (3)
  - HEADACHE [None]
  - MYALGIA [None]
  - WEIGHT INCREASED [None]
